FAERS Safety Report 7048534-8 (Version None)
Quarter: 2010Q4

REPORT INFORMATION
  Report Type: 
  Country: None (occurrence: None)
  Receive Date: 20101007
  Receipt Date: 20100921
  Transmission Date: 20110411
  Serious: No
  Sender: FDA-Public Use
  Company Number: WAES 1009USA04795

PATIENT
  Sex: Female

DRUGS (1)
  1. TOP TRESADERM UNK [Suspect]
     Indication: DRUG ADMINISTRATION ERROR
     Dosage: OPHTHALMIC
     Route: 047
     Dates: start: 20100921

REACTIONS (2)
  - EYE IRRITATION [None]
  - WRONG DRUG ADMINISTERED [None]
